FAERS Safety Report 22061583 (Version 1)
Quarter: 2023Q1

REPORT INFORMATION
  Report Type: Spontaneous
  Country: IN (occurrence: IN)
  Receive Date: 20230304
  Receipt Date: 20230304
  Transmission Date: 20230418
  Serious: Yes (Other)
  Sender: FDA-Public Use
  Company Number: IN-MACLEODS PHARMACEUTICALS US LTD-MAC2023040021

PATIENT

DRUGS (10)
  1. OLANZAPINE [Suspect]
     Active Substance: OLANZAPINE
     Indication: Hallucinations, mixed
     Dosage: 2.5 MILLIGRAM, QD
     Route: 048
  2. OLANZAPINE [Suspect]
     Active Substance: OLANZAPINE
     Dosage: 10 MILLIGRAM, QD (TITRATED TO 10 MG PER DAY OVER ONE WEEK)
     Route: 048
  3. LORAZEPAM [Concomitant]
     Active Substance: LORAZEPAM
     Indication: Product used for unknown indication
     Dosage: UNK (PARENTERALLY )
     Route: 051
  4. LORAZEPAM [Concomitant]
     Active Substance: LORAZEPAM
     Dosage: UNK
     Route: 048
  5. THIAMINE [Concomitant]
     Active Substance: THIAMINE
     Indication: Product used for unknown indication
     Dosage: UNK (PARENTRALLY)
     Route: 051
  6. THIAMINE [Concomitant]
     Active Substance: THIAMINE
     Dosage: UNK
     Route: 048
  7. VITAMINS [Concomitant]
     Active Substance: VITAMINS
     Indication: Product used for unknown indication
     Dosage: UNK
     Route: 051
  8. VITAMINS [Concomitant]
     Active Substance: VITAMINS
     Dosage: UNK
     Route: 048
  9. LEVETIRACETAM [Concomitant]
     Active Substance: LEVETIRACETAM
     Indication: Product used for unknown indication
     Dosage: UNK
     Route: 048
  10. Pancreatin/dimethicone [Concomitant]
     Indication: Product used for unknown indication
     Dosage: UNK
     Route: 048

REACTIONS (1)
  - Diabetes insipidus [Recovered/Resolved]
